FAERS Safety Report 9054192 (Version 5)
Quarter: 2013Q2

REPORT INFORMATION
  Report Type: Report from Study
  Country: US (occurrence: US)
  Receive Date: 20130130
  Receipt Date: 20130514
  Transmission Date: 20140414
  Serious: Yes (Life-Threatening, Hospitalization)
  Sender: FDA-Public Use
  Company Number: US-ROCHE-1180477

PATIENT
  Age: 67 Year
  Sex: Male
  Weight: 110.3 kg

DRUGS (14)
  1. TOCILIZUMAB [Suspect]
     Indication: RHEUMATOID ARTHRITIS
     Dosage: LAST DOSE: 8 MG/KG, MOST RECENT DOSE ON: 14/NOV/2012
     Route: 042
     Dates: start: 20120702
  2. FOLIC ACID [Concomitant]
     Indication: RHEUMATOID ARTHRITIS
     Route: 048
     Dates: start: 20090623
  3. ALENDRONATE SODIUM [Concomitant]
     Indication: OSTEOPENIA
     Route: 048
     Dates: start: 20120424
  4. OMEPRAZOLE [Concomitant]
     Route: 048
     Dates: start: 20120207
  5. TYLENOL [Concomitant]
     Indication: ARTHRALGIA
     Route: 048
     Dates: start: 20090623
  6. TYLENOL [Concomitant]
     Indication: RHEUMATOID ARTHRITIS
  7. BISMUTH SUBSALICYLATE [Concomitant]
     Indication: DIARRHOEA
     Route: 048
     Dates: start: 20120702
  8. FISH OIL [Concomitant]
     Route: 065
     Dates: start: 20100309
  9. LISINOPRIL [Concomitant]
     Indication: HYPERTENSION
     Route: 048
     Dates: start: 20120607
  10. METFORMIN [Concomitant]
     Indication: TYPE 2 DIABETES MELLITUS
     Route: 048
     Dates: start: 20120516
  11. PREDNISONE [Concomitant]
     Indication: RHEUMATOID ARTHRITIS
     Route: 048
     Dates: start: 20120207
  12. SULFAMETHOXAZOLE [Concomitant]
     Route: 048
     Dates: start: 20120313
  13. TRIMETHOPRIM [Concomitant]
     Route: 048
     Dates: start: 20120313
  14. VANCOMYCIN [Concomitant]
     Indication: ARTHRITIS INFECTIVE
     Route: 042
     Dates: start: 20121128

REACTIONS (2)
  - Deep vein thrombosis [Recovering/Resolving]
  - Ischaemic stroke [Recovered/Resolved]
